FAERS Safety Report 13180044 (Version 2)
Quarter: 2017Q2

REPORT INFORMATION
  Report Type: Spontaneous
  Country: US (occurrence: US)
  Receive Date: 20170202
  Receipt Date: 20170505
  Transmission Date: 20170830
  Serious: No
  Sender: FDA-Public Use
  Company Number: US-TEVA-728711ACC

PATIENT
  Sex: Female
  Weight: 108.05 kg

DRUGS (3)
  1. VITAMINS [Concomitant]
     Active Substance: VITAMINS
  2. FLONASE [Concomitant]
     Active Substance: FLUTICASONE PROPIONATE
  3. PARAGARD T 380A [Suspect]
     Active Substance: COPPER
     Indication: CONTRACEPTION
     Dates: start: 20161129, end: 20161228

REACTIONS (5)
  - Vaginal haemorrhage [Unknown]
  - Device expulsion [Recovered/Resolved]
  - Pelvic discomfort [Unknown]
  - Muscle spasms [Unknown]
  - Nausea [Unknown]
